FAERS Safety Report 10146354 (Version 1)
Quarter: 2014Q2

REPORT INFORMATION
  Report Type: Spontaneous
  Country: IN (occurrence: None)
  Receive Date: 20140429
  Receipt Date: 20140429
  Transmission Date: 20141212
  Serious: Yes (Other)
  Sender: FDA-Public Use
  Company Number: IN-SEPTODONT-201401787

PATIENT
  Age: 32 Year
  Sex: Male

DRUGS (1)
  1. LIGNOCAINE WITH ADRENALINE [Suspect]
     Indication: DENTAL OPERATION

REACTIONS (2)
  - Visual impairment [None]
  - Blindness unilateral [None]
